FAERS Safety Report 6983685-5 (Version None)
Quarter: 2010Q3

REPORT INFORMATION
  Report Type: 
  Country: None (occurrence: None)
  Receive Date: 20100914
  Receipt Date: 20020314
  Transmission Date: 20110219
  Serious: Yes (Hospitalization)
  Sender: FDA-Public Use
  Company Number: US-WYE-H07131108

PATIENT
  Age: 76 Year
  Sex: Male
  Weight: 76.7 kg

DRUGS (2)
  1. IBUPROFEN [Suspect]
     Indication: JOINT SPRAIN
     Route: 048
     Dates: start: 20000831
  2. IBUPROFEN [Suspect]
     Indication: MUSCLE STRAIN

REACTIONS (2)
  - GASTROINTESTINAL HAEMORRHAGE [None]
  - OVERDOSE [None]
